FAERS Safety Report 6040104-3 (Version None)
Quarter: 2009Q1

REPORT INFORMATION
  Report Type: 
  Country: None (occurrence: None)
  Receive Date: 20090116
  Receipt Date: 20071212
  Transmission Date: 20090719
  Serious: No
  Sender: FDA-Public Use
  Company Number: US-BRISTOL-MYERS SQUIBB COMPANY-14013106

PATIENT
  Sex: Female

DRUGS (6)
  1. ABILIFY [Suspect]
  2. PROVIGIL [Interacting]
     Route: 048
  3. KEPPRA [Interacting]
  4. LEXAPRO [Interacting]
  5. LAMICTAL [Interacting]
  6. LEVOTHYROXINE SODIUM [Interacting]

REACTIONS (3)
  - DRUG INTERACTION [None]
  - DRUG SCREEN POSITIVE [None]
  - URINE ODOUR ABNORMAL [None]
